FAERS Safety Report 4295186-6 (Version None)
Quarter: 2004Q1

REPORT INFORMATION
  Report Type: 
  Country: None (occurrence: None)
  Receive Date: 20040212
  Receipt Date: 20040128
  Transmission Date: 20041129
  Serious: Yes (Death, Hospitalization)
  Sender: FDA-Public Use
  Company Number: 189697

PATIENT
  Age: 56 Year
  Sex: Female
  Weight: 92.6 kg

DRUGS (1)
  1. AVONEX [Suspect]
     Indication: MULTIPLE SCLEROSIS
     Dates: end: 20030101

REACTIONS (12)
  - BLOOD PRESSURE DECREASED [None]
  - CAPNOCYTOPHAGIA INFECTION [None]
  - CARDIAC ARREST [None]
  - COAGULOPATHY [None]
  - DIARRHOEA [None]
  - ELECTROLYTE IMBALANCE [None]
  - MENINGOCOCCAL BACTERAEMIA [None]
  - METABOLIC ACIDOSIS [None]
  - MULTI-ORGAN FAILURE [None]
  - PULMONARY ARTERIAL WEDGE PRESSURE INCREASED [None]
  - RENAL IMPAIRMENT [None]
  - SEPSIS [None]
